FAERS Safety Report 8349188-0 (Version None)
Quarter: 2012Q2

REPORT INFORMATION
  Report Type: 
  Country: None (occurrence: None)
  Receive Date: 20120510
  Receipt Date: 20120503
  Transmission Date: 20120825
  Serious: Yes (Other)
  Sender: FDA-Public Use
  Company Number: US-PURDUE-USA-2012-0086518

PATIENT
  Sex: Female

DRUGS (1)
  1. OXYCONTIN [Suspect]
     Indication: PRODUCT USED FOR UNKNOWN INDICATION
     Dosage: 80 MG, EVERY 8 HOURS

REACTIONS (9)
  - INSOMNIA [None]
  - MUSCULOSKELETAL PAIN [None]
  - DIARRHOEA [None]
  - TENDON INJURY [None]
  - PAIN [None]
  - DRUG EFFECT DECREASED [None]
  - FALL [None]
  - HEAD INJURY [None]
  - TREMOR [None]
